FAERS Safety Report 25970674 (Version 2)
Quarter: 2025Q4

REPORT INFORMATION
  Report Type: Report from Study
  Country: CA (occurrence: CA)
  Receive Date: 20251028
  Receipt Date: 20251216
  Transmission Date: 20260117
  Serious: Yes (Other)
  Sender: PFIZER
  Company Number: CA-PFIZER INC-202500134668

PATIENT
  Age: 30 Year
  Sex: Female
  Weight: 48 kg

DRUGS (4)
  1. IXIFI [Suspect]
     Active Substance: INFLIXIMAB-QBTX
     Indication: Crohn^s disease
     Dosage: 300 MG, W 0, 2, 6 WEEKS THEN EVERY 8 WEEKS (WEEK 0)
     Route: 042
     Dates: start: 20250716
  2. IXIFI [Suspect]
     Active Substance: INFLIXIMAB-QBTX
     Dosage: 300 MG, W 0, 2, 6 WEEKS THEN EVERY 8 WEEKS (WEEK 2)
     Route: 042
     Dates: start: 20250731
  3. IXIFI [Suspect]
     Active Substance: INFLIXIMAB-QBTX
     Dosage: 300 MG, AFTER 4 WEEKS AND 6 DAYS (WEEK 6)
     Route: 042
     Dates: start: 20250903
  4. IXIFI [Suspect]
     Active Substance: INFLIXIMAB-QBTX
     Dosage: 300 MG,EVERY 8 WEEKS (300 MG,W 0, 2, 6 WEEKS THEN EVERY 8 WEEKS )
     Route: 042
     Dates: start: 20251021

REACTIONS (8)
  - Colitis ulcerative [Recovering/Resolving]
  - Fistula [Not Recovered/Not Resolved]
  - Condition aggravated [Recovering/Resolving]
  - Abscess [Recovered/Resolved]
  - Off label use [Unknown]
  - Off label use [Unknown]
  - Intentional product use issue [Unknown]
  - Off label use [Unknown]

NARRATIVE: CASE EVENT DATE: 20250101
